FAERS Safety Report 11848884 (Version 1)
Quarter: 2015Q4

REPORT INFORMATION
  Report Type: Other
  Country: US (occurrence: US)
  Receive Date: 20151218
  Receipt Date: 20151218
  Transmission Date: 20160305
  Serious: Yes (Hospitalization)
  Sender: FDA-Public Use
  Company Number: US-LUPIN PHARMACEUTICALS INC.-2015-04121

PATIENT
  Age: 61 Year
  Sex: Female

DRUGS (2)
  1. PREDNISONE. [Concomitant]
     Active Substance: PREDNISONE
     Indication: BRONCHITIS
     Route: 065
  2. CEPHALEXIN. [Suspect]
     Active Substance: CEPHALEXIN
     Indication: BRONCHITIS
     Route: 065

REACTIONS (3)
  - Pigment nephropathy [Recovered/Resolved]
  - Autoimmune haemolytic anaemia [Recovered/Resolved]
  - Acute kidney injury [Recovered/Resolved]
